FAERS Safety Report 10716220 (Version 2)
Quarter: 2015Q1

REPORT INFORMATION
  Report Type: Spontaneous
  Country: JP (occurrence: JP)
  Receive Date: 20150116
  Receipt Date: 20150130
  Transmission Date: 20150721
  Serious: No
  Sender: FDA-Public Use
  Company Number: JP-JNJFOC-20141216150

PATIENT
  Age: 83 Year
  Sex: Female

DRUGS (10)
  1. TAIPROTON [Concomitant]
     Active Substance: LANSOPRAZOLE
     Route: 048
  2. TRAMCET [Suspect]
     Active Substance: ACETAMINOPHEN\TRAMADOL
     Indication: PAIN
     Dosage: ONCE A DAY
     Route: 048
     Dates: start: 201404, end: 20140530
  3. DAIOKANZOTO [Concomitant]
     Active Substance: LICORICE ROOT EXTRACT\RHUBARB
     Route: 048
  4. HOCHU-EKKI-TO [Concomitant]
     Active Substance: UNSPECIFIED INGREDIENT
     Route: 048
  5. BERIZYM [Concomitant]
     Active Substance: CELLULASE\DIASTASE\LIPASE
     Route: 048
  6. LAC-B [Concomitant]
     Active Substance: BIFIDOBACTERIUM SPP.
     Route: 048
  7. SENNARIDE [Concomitant]
     Active Substance: SENNOSIDES A AND B
     Route: 048
  8. TRAMCET [Suspect]
     Active Substance: ACETAMINOPHEN\TRAMADOL
     Indication: PAIN
     Dosage: ONCE A DAY
     Route: 048
     Dates: start: 20140611
  9. CALONAL [Concomitant]
     Active Substance: ACETAMINOPHEN
     Indication: PAIN
     Route: 065
     Dates: start: 20140611
  10. TRAMCET [Suspect]
     Active Substance: ACETAMINOPHEN\TRAMADOL
     Indication: PAIN
     Dosage: ONCE A DAY
     Route: 048
     Dates: start: 20140530, end: 20140611

REACTIONS (2)
  - Ageusia [Recovered/Resolved]
  - Abdominal pain [Unknown]

NARRATIVE: CASE EVENT DATE: 20140606
